FAERS Safety Report 5901797-1 (Version None)
Quarter: 2008Q3

REPORT INFORMATION
  Report Type: 
  Country: None (occurrence: None)
  Receive Date: 20080925
  Receipt Date: 20061201
  Transmission Date: 20090109
  Serious: Yes (Hospitalization)
  Sender: FDA-Public Use
  Company Number: 2006-01091FE

PATIENT
  Age: 80 Year
  Sex: Male

DRUGS (1)
  1. MINIRIN [Suspect]
     Indication: NOCTURIA
     Dosage: IN
     Dates: start: 20051001

REACTIONS (3)
  - CONFUSIONAL STATE [None]
  - HYPONATRAEMIA [None]
  - PALPITATIONS [None]
